FAERS Safety Report 9965054 (Version 1)
Quarter: 2014Q1

REPORT INFORMATION
  Report Type: Report from Study
  Country: US (occurrence: US)
  Receive Date: 20140305
  Receipt Date: 20140305
  Transmission Date: 20141002
  Serious: No
  Sender: FDA-Public Use
  Company Number: US-ABBVIE-13P-163-1128259-00

PATIENT
  Age: 81 Year
  Sex: Male

DRUGS (1)
  1. HUMIRA [Suspect]
     Indication: COLITIS ULCERATIVE
     Route: 058
     Dates: start: 20130612

REACTIONS (4)
  - Hypoaesthesia [Unknown]
  - Pain in extremity [Unknown]
  - Paraesthesia [Unknown]
  - Local swelling [Unknown]
